FAERS Safety Report 9393417 (Version 1)
Quarter: 2013Q3

REPORT INFORMATION
  Report Type: Spontaneous
  Country: GB (occurrence: None)
  Receive Date: 20130708
  Receipt Date: 20130708
  Transmission Date: 20140515
  Serious: Yes (Hospitalization, Other)
  Sender: FDA-Public Use
  Company Number: GB-023360

PATIENT
  Age: 66 Year
  Sex: Male

DRUGS (12)
  1. CHLORAMBUCIL [Suspect]
     Indication: CHRONIC LYMPHOCYTIC LEUKAEMIA
     Dosage: 10 MG/M2 EVERY 28 DAYS (10 MG/M2), ORAL
     Route: 048
     Dates: start: 20090422
  2. MABTHERA [Suspect]
     Indication: CHRONIC LYMPHOCYTIC LEUKAEMIA
     Dosage: 375 MG/M2 EVERY 28 DAYS (375 MG/M2)
     Route: 042
     Dates: start: 20090422, end: 20090526
  3. ALLOPURINOL (ALLOPURINOL) (UNKNOWN) [Concomitant]
  4. POTASSIUM (POTASSIUM) (UNKNOWN) [Concomitant]
  5. ITRACONAZOLE (ITRAZONAZOLE) [Concomitant]
  6. BENZYDAMINE (BENZYDAMINE) [Concomitant]
  7. BECLOMETASONE (BECLOMETASONE) [Concomitant]
  8. ACICLOVIR (ACICLOVIR) [Concomitant]
  9. POTASSIUM CHLORIDE (POTASSIUM CHLORIDE) [Concomitant]
  10. LENOGRASTIM (LENOGRASTIM) [Concomitant]
  11. LANSOPRAZOLE (LANSOPRAZOLE) [Concomitant]
  12. PREDNISOLONE (PREDNISOLONE) [Concomitant]

REACTIONS (9)
  - Febrile neutropenia [None]
  - Oropharyngeal pain [None]
  - Endocarditis [None]
  - Clostridium colitis [None]
  - Splinter haemorrhages [None]
  - Cardiac murmur [None]
  - Mitral valve incompetence [None]
  - Tricuspid valve incompetence [None]
  - Pleural effusion [None]
